FAERS Safety Report 13555169 (Version 1)
Quarter: 2017Q2

REPORT INFORMATION
  Report Type: Other
  Country: FR (occurrence: FR)
  Receive Date: 20170517
  Receipt Date: 20170517
  Transmission Date: 20170830
  Serious: Yes (Hospitalization)
  Sender: FDA-Public Use
  Company Number: FR-STASON PHARMACEUTICALS, INC.-2020882

PATIENT
  Age: 26 Year
  Sex: Male

DRUGS (1)
  1. ACYCLOVIR. [Suspect]
     Active Substance: ACYCLOVIR
     Dates: start: 20160301, end: 20160523

REACTIONS (1)
  - Rhabdomyolysis [None]
